FAERS Safety Report 7362375-3 (Version None)
Quarter: 2011Q1

REPORT INFORMATION
  Report Type: 
  Country: None (occurrence: None)
  Receive Date: 20110318
  Receipt Date: 20110311
  Transmission Date: 20110831
  Serious: Yes (Other)
  Sender: FDA-Public Use
  Company Number: US-CEPHALON-2011001159

PATIENT
  Sex: Female
  Weight: 61 kg

DRUGS (7)
  1. MULTIGEN [Concomitant]
  2. WELLBUTRIN [Concomitant]
  3. SIMVASTATIN [Concomitant]
  4. KLONOPIN [Concomitant]
  5. PROZAC [Concomitant]
  6. PROVIGIL [Suspect]
     Indication: FATIGUE
     Route: 048
     Dates: start: 20070101, end: 20110201
  7. BUSPAR [Concomitant]

REACTIONS (7)
  - KNEE OPERATION [None]
  - SOMNOLENCE [None]
  - INCREASED APPETITE [None]
  - DEPRESSION [None]
  - FATIGUE [None]
  - SOCIAL AVOIDANT BEHAVIOUR [None]
  - DECREASED INTEREST [None]
